FAERS Safety Report 5656398-X (Version None)
Quarter: 2008Q1

REPORT INFORMATION
  Report Type: 
  Country: None (occurrence: None)
  Receive Date: 20080309
  Receipt Date: 20071220
  Transmission Date: 20080703
  Serious: No
  Sender: FDA-Public Use
  Company Number: US-BAYER-200714274BCC

PATIENT
  Age: 74 Year
  Sex: Female
  Weight: 70 kg

DRUGS (2)
  1. ALEVE TABLET + CAPLETS [Suspect]
     Indication: ARTHRALGIA
     Route: 048
     Dates: end: 20060601
  2. ALEVE TABLET + CAPLETS [Suspect]
     Route: 048
     Dates: end: 20060601

REACTIONS (1)
  - ARTHRALGIA [None]
